FAERS Safety Report 4544439-2 (Version None)
Quarter: 2004Q4

REPORT INFORMATION
  Report Type: 
  Country: None (occurrence: None)
  Receive Date: 20041230
  Receipt Date: 20041220
  Transmission Date: 20050328
  Serious: Yes (Death)
  Sender: FDA-Public Use
  Company Number: B0362621A

PATIENT
  Age: 14 Year
  Sex: Male

DRUGS (4)
  1. MYLERAN [Suspect]
     Dosage: 150 MG/M2
  2. ALKERAN [Suspect]
     Dosage: 140 MG/M2
  3. STEM CELL TRANSPLANT [Concomitant]
  4. THIOTEPA [Concomitant]

REACTIONS (9)
  - ASCITES [None]
  - BLOOD BILIRUBIN INCREASED [None]
  - DISSEMINATED INTRAVASCULAR COAGULATION [None]
  - GASTROINTESTINAL HAEMORRHAGE [None]
  - GASTROINTESTINAL INFECTION [None]
  - PORTAL HYPERTENSION [None]
  - PORTAL VEIN THROMBOSIS [None]
  - SEPSIS [None]
  - VENOOCCLUSIVE LIVER DISEASE [None]
